FAERS Safety Report 15588538 (Version 1)
Quarter: 2018Q4

REPORT INFORMATION
  Report Type: Spontaneous
  Country: US (occurrence: US)
  Receive Date: 20181105
  Receipt Date: 20181105
  Transmission Date: 20190205
  Serious: Yes (Hospitalization, Other)
  Sender: FDA-Public Use
  Company Number: US-BIOVITRUM-2018BV000564

PATIENT
  Sex: Male

DRUGS (1)
  1. ALPROLIX [Suspect]
     Active Substance: EFTRENONACOG ALFA
     Indication: FACTOR IX DEFICIENCY
     Route: 065

REACTIONS (5)
  - Shoulder operation [Recovered/Resolved]
  - Diabetes mellitus [Not Recovered/Not Resolved]
  - Drug ineffective [Unknown]
  - Cardiac failure congestive [Not Recovered/Not Resolved]
  - Post procedural haemorrhage [Recovered/Resolved]
